FAERS Safety Report 8607599-X (Version None)
Quarter: 2012Q3

REPORT INFORMATION
  Report Type: 
  Country: None (occurrence: None)
  Receive Date: 20120809
  Receipt Date: 20120809
  Transmission Date: 20120928
  Serious: Yes (Hospitalization)
  Sender: FDA-Public Use
  Company Number: None

PATIENT
  Age: 67 Year
  Sex: Male
  Weight: 114.5 kg

DRUGS (1)
  1. ACETAMINOPHEN/HYDROCODONE BITARTRATE [Suspect]
     Dosage: 2 TAB ONCE PO
     Route: 048
     Dates: start: 20111227, end: 20111227

REACTIONS (1)
  - ANGIOEDEMA [None]
